FAERS Safety Report 23687527 (Version 10)
Quarter: 2024Q3

REPORT INFORMATION
  Report Type: Spontaneous
  Country: JP (occurrence: JP)
  Receive Date: 20240329
  Receipt Date: 20240919
  Transmission Date: 20241016
  Serious: Yes (Other)
  Sender: INCYTE
  Company Number: JP-INCYTE CORPORATION-2024IN003321

PATIENT

DRUGS (5)
  1. PEMAZYRE [Suspect]
     Active Substance: PEMIGATINIB
     Indication: Gastric cancer stage IV
     Dosage: 13.5 MILLIGRAM, DAILY
     Route: 065
     Dates: start: 20230605, end: 20230618
  2. PEMAZYRE [Suspect]
     Active Substance: PEMIGATINIB
     Dosage: 13.5 MILLIGRAM, DAILY
     Route: 065
     Dates: start: 20230626, end: 20230709
  3. PEMAZYRE [Suspect]
     Active Substance: PEMIGATINIB
     Dosage: 13.5 MILLIGRAM, DAILY
     Route: 065
     Dates: start: 20230724, end: 20230806
  4. PEMAZYRE [Suspect]
     Active Substance: PEMIGATINIB
     Dosage: 13.5 MILLIGRAM, DAILY
     Route: 065
     Dates: start: 20230814, end: 20230827
  5. PEMAZYRE [Suspect]
     Active Substance: PEMIGATINIB
     Dosage: 13.5 MILLIGRAM, DAILY
     Route: 065
     Dates: start: 20230904, end: 20230917

REACTIONS (5)
  - Gastric cancer stage IV [Not Recovered/Not Resolved]
  - Disease progression [Not Recovered/Not Resolved]
  - Off label use [Unknown]
  - Hyperphosphataemia [Recovered/Resolved]
  - Onycholysis [Recovered/Resolved]

NARRATIVE: CASE EVENT DATE: 20230814
